FAERS Safety Report 18664244 (Version 4)
Quarter: 2021Q2

REPORT INFORMATION
  Report Type: Spontaneous
  Country: GB (occurrence: GB)
  Receive Date: 20201225
  Receipt Date: 20210625
  Transmission Date: 20210717
  Serious: Yes (Other)
  Sender: FDA-Public Use
  Company Number: GB-BIOVITRUM-2020GB7875

PATIENT
  Age: 52 Year
  Sex: Male

DRUGS (10)
  1. SIMVASTATIN. [Concomitant]
     Active Substance: SIMVASTATIN
  2. METFORMIN [Concomitant]
     Active Substance: METFORMIN HYDROCHLORIDE
     Dosage: 2000
  3. SUKKARTO SR [Concomitant]
  4. PERINDOPRIL [Concomitant]
     Active Substance: PERINDOPRIL
  5. COLECALCIFEROL [Concomitant]
     Active Substance: CHOLECALCIFEROL
  6. GLUCOPHAGE [Concomitant]
     Active Substance: METFORMIN HYDROCHLORIDE
  7. ZAPAIN [Concomitant]
     Active Substance: ACETAMINOPHEN\CODEINE PHOSPHATE
     Dosage: 30/500 MG
  8. ORFADIN [Suspect]
     Active Substance: NITISINONE
     Indication: ALKAPTONURIA
     Dates: start: 2016
  9. VIPIDIA [Concomitant]
     Active Substance: ALOGLIPTIN BENZOATE
  10. ALOGLIPTIN. [Concomitant]
     Active Substance: ALOGLIPTIN

REACTIONS (2)
  - Cataract [Not Recovered/Not Resolved]
  - Amino acid level increased [Not Recovered/Not Resolved]

NARRATIVE: CASE EVENT DATE: 2017
